FAERS Safety Report 20031701 (Version 1)
Quarter: 2021Q4

REPORT INFORMATION
  Report Type: Spontaneous
  Country: CN (occurrence: CN)
  Receive Date: 20211103
  Receipt Date: 20211103
  Transmission Date: 20220303
  Serious: Yes (Hospitalization)
  Sender: FDA-Public Use
  Company Number: CN-ABBVIE-21K-035-4144029-00

PATIENT
  Age: 28 Year
  Sex: Female
  Weight: 53 kg

DRUGS (3)
  1. VALPROATE SODIUM [Suspect]
     Active Substance: VALPROATE SODIUM
     Indication: Mania
     Route: 048
     Dates: start: 20190822, end: 20190904
  2. RISPERIDONE [Suspect]
     Active Substance: RISPERIDONE
     Indication: Mania
     Route: 048
     Dates: start: 20190823, end: 20190904
  3. RISPERIDONE [Suspect]
     Active Substance: RISPERIDONE
     Route: 048
     Dates: start: 20190902, end: 20190904

REACTIONS (1)
  - Blood prolactin increased [Unknown]

NARRATIVE: CASE EVENT DATE: 20190903
